FAERS Safety Report 8609712-7 (Version None)
Quarter: 2012Q3

REPORT INFORMATION
  Report Type: 
  Country: None (occurrence: None)
  Receive Date: 20120821
  Receipt Date: 20120813
  Transmission Date: 20120928
  Serious: Yes (Disabling, Other)
  Sender: FDA-Public Use
  Company Number: US-CELGENEUS-163-21880-12070250

PATIENT
  Sex: Female

DRUGS (6)
  1. REVLIMID [Suspect]
     Indication: MULTIPLE MYELOMA
     Dosage: 25 MILLIGRAM
     Route: 048
     Dates: start: 20110627
  2. COUMADIN [Concomitant]
     Route: 065
     Dates: start: 20080101
  3. REVLIMID [Suspect]
     Dosage: 15 MILLIGRAM
     Route: 048
     Dates: start: 20111205
  4. COUMADIN [Concomitant]
     Indication: PULMONARY EMBOLISM
  5. DECADRON PHOSPHATE [Concomitant]
     Route: 065
     Dates: start: 20070101, end: 20110901
  6. VELCADE [Concomitant]
     Dosage: 1.3 MILLIGRAM/SQ. METER
     Route: 041
     Dates: start: 20090101, end: 20110901

REACTIONS (4)
  - DIARRHOEA [None]
  - INTERNATIONAL NORMALISED RATIO ABNORMAL [None]
  - OSTEOARTHRITIS [None]
  - HIP DYSPLASIA [None]
